FAERS Safety Report 6491683-3 (Version None)
Quarter: 2009Q4

REPORT INFORMATION
  Report Type: 
  Country: None (occurrence: None)
  Receive Date: 20091125
  Receipt Date: 20090515
  Transmission Date: 20100525
  Serious: Yes (Hospitalization)
  Sender: FDA-Public Use
  Company Number: 2009BH008149

PATIENT
  Sex: Female

DRUGS (12)
  1. DIANEAL [Suspect]
     Indication: RENAL FAILURE CHRONIC
     Dosage: ; UNK ; IP
     Route: 033
     Dates: start: 20090505
  2. DIANEAL [Suspect]
     Indication: RENAL FAILURE CHRONIC
     Dosage: ; UNK ; IP
     Route: 033
     Dates: start: 20090505
  3. RENAGEL [Concomitant]
  4. POTASSIUM [Concomitant]
  5. SIMVASTATIN [Concomitant]
  6. PROMETH BC [Concomitant]
  7. BENICAR [Concomitant]
  8. METGROLOL [Concomitant]
  9. FOLIC ACID [Concomitant]
  10. ASPIRIN [Concomitant]
  11. VITAMIN B COMPLEX CAP [Concomitant]
  12. SENSIPAR [Concomitant]

REACTIONS (1)
  - PERITONITIS [None]
